FAERS Safety Report 5958747-1 (Version None)
Quarter: 2008Q4

REPORT INFORMATION
  Report Type: 
  Country: None (occurrence: None)
  Receive Date: 20081119
  Receipt Date: 20081104
  Transmission Date: 20090506
  Serious: No
  Sender: FDA-Public Use
  Company Number: US-B.I. PHARMACEUTICALS,INC./RIDGEFIELD-2007-BP-26537BP

PATIENT
  Sex: Female

DRUGS (6)
  1. SPIRIVA [Suspect]
     Indication: CHRONIC OBSTRUCTIVE PULMONARY DISEASE
     Dosage: 18MCG
     Route: 055
     Dates: start: 20050101
  2. SPIRIVA [Suspect]
     Indication: BRONCHIECTASIS
  3. ALBUTEROL [Concomitant]
  4. SEREVENT [Concomitant]
  5. THYROID MEDS [Concomitant]
  6. METOPROLOL TARTRATE [Concomitant]

REACTIONS (2)
  - DRY MOUTH [None]
  - INSOMNIA [None]
